FAERS Safety Report 14228460 (Version 1)
Quarter: 2017Q4

REPORT INFORMATION
  Report Type: Spontaneous
  Country: US (occurrence: None)
  Receive Date: 20171124
  Receipt Date: 20171124
  Transmission Date: 20180321
  Serious: No
  Sender: FDA-Public Use
  Company Number: None

PATIENT
  Age: 38 Year
  Sex: Male

DRUGS (1)
  1. STELARA [Suspect]
     Active Substance: USTEKINUMAB
     Indication: CROHN^S DISEASE
     Dosage: 390MG INITIAL FUSION INTRAVENOUSLY
     Route: 042
     Dates: start: 20170824

REACTIONS (3)
  - Anxiety [None]
  - Hypoaesthesia [None]
  - Paraesthesia [None]

NARRATIVE: CASE EVENT DATE: 20171016
